FAERS Safety Report 13617235 (Version 2)
Quarter: 2018Q2

REPORT INFORMATION
  Report Type: Spontaneous
  Country: US (occurrence: US)
  Receive Date: 20170606
  Receipt Date: 20180517
  Transmission Date: 20180711
  Serious: No
  Sender: FDA-Public Use
  Company Number: US-SA-2017SA075493

PATIENT
  Age: 58 Year
  Sex: Female

DRUGS (19)
  1. EPIPEN [Concomitant]
     Active Substance: EPINEPHRINE
     Indication: HYPERSENSITIVITY
     Dosage: EPIPEN 2-PAK 0.3 MG/0.3ML INJECTION SOLUTION AUTO-INJECTOR?INJECT AT ONSET OF ALLERGIC REACTION
     Dates: start: 20140613
  2. ACETAMINOPHEN W/OXYCODONE [Concomitant]
     Active Substance: ACETAMINOPHEN\OXYCODONE HYDROCHLORIDE
     Indication: PAIN
     Dosage: 5-325 MG ORAL TABLET?TAKE 1 TABLET EVERY 8 - 12 HOURS AS NEEDED
     Route: 048
     Dates: start: 20161220
  3. LANTUS SOLOSTAR [Suspect]
     Active Substance: INSULIN GLARGINE
     Indication: TYPE 1 DIABETES MELLITUS
     Dosage: DOSE :30 UNITS OF LANTUS IN THE MORNING AND 35 UNITS AT NIGHT
     Route: 065
     Dates: start: 20080701
  4. INSULIN [Concomitant]
     Active Substance: INSULIN NOS
     Dosage: BD INSULIN SYRINGE ULTRAFINE 31G X 5/16 0.3 ML MISCELLANEOUS?USE AS DIRECTED WITH HUMULIN R
     Dates: start: 20160826
  5. LISINOPRIL. [Concomitant]
     Active Substance: LISINOPRIL
     Dosage: STRENGTH:5MG
     Route: 048
     Dates: start: 20170627
  6. LORAZEPAM. [Concomitant]
     Active Substance: LORAZEPAM
     Dosage: 1 TABLET 1 HOUR BEFORE PROCEDURE
     Route: 048
     Dates: start: 20170123
  7. ATORVASTATIN CALCIUM. [Concomitant]
     Active Substance: ATORVASTATIN CALCIUM
     Route: 048
     Dates: start: 20151201
  8. ALEVE [Concomitant]
     Active Substance: NAPROXEN SODIUM
     Route: 048
     Dates: start: 20160826
  9. HYDROCHLOROTHIAZIDE. [Concomitant]
     Active Substance: HYDROCHLOROTHIAZIDE
     Dosage: STRENGTH:50- MG
     Route: 048
     Dates: start: 20141212
  10. ALBUTEROL SULFATE. [Concomitant]
     Active Substance: ALBUTEROL SULFATE
     Indication: WHEEZING
     Dates: start: 20141203
  11. CITALOPRAM HYDROBROMIDE. [Concomitant]
     Active Substance: CITALOPRAM HYDROBROMIDE
     Route: 048
     Dates: start: 20140613
  12. HUMULIN R [Concomitant]
     Active Substance: INSULIN HUMAN
     Dosage: INJECT SUBCUTANEOUSLY 10/8/10 UNITS THREE TIMES A?DAY BEFORE MEALS
     Route: 058
     Dates: start: 20160826
  13. NIFEDIPINE. [Concomitant]
     Active Substance: NIFEDIPINE
     Dosage: STRENGTH:60 MG
     Route: 048
     Dates: start: 20140618
  14. GLIPIZIDE. [Concomitant]
     Active Substance: GLIPIZIDE
     Dosage: 10MG ORAL TABLET; TAKE 1 TABLET TWICE A DAY; QUNATITY: 180
     Route: 048
     Dates: start: 20140613
  15. ASPIRIN. [Concomitant]
     Active Substance: ASPIRIN
     Dosage: STRENGTH:81 MG
     Route: 048
  16. MIRALAX [Concomitant]
     Active Substance: POLYETHYLENE GLYCOL 3350
     Dosage: MIX 1 CAPFUL (17GM) IN 8 OUNCES OF WATER, JUICE, OR?TEA AND DRINK DAILY.
     Route: 048
     Dates: start: 20160826
  17. SOLOSTAR [Suspect]
     Active Substance: DEVICE
     Indication: TYPE 1 DIABETES MELLITUS
     Dates: start: 20080701
  18. GABAPENTIN. [Concomitant]
     Active Substance: GABAPENTIN
     Route: 048
     Dates: start: 20141203
  19. VENTOLIN [Concomitant]
     Active Substance: ALBUTEROL SULFATE
     Dosage: INHALATION AEROSOL SOLUTION?INHALE 1 TO 2 PUFFS BY MOUTH EVERY 4 TO 6 HOURS AS NEEDED
     Route: 055
     Dates: start: 20161003

REACTIONS (3)
  - Product use issue [Unknown]
  - Visual impairment [Unknown]
  - Cataract [Unknown]

NARRATIVE: CASE EVENT DATE: 2007
